FAERS Safety Report 16960546 (Version 1)
Quarter: 2019Q4

REPORT INFORMATION
  Report Type: Report from Study
  Country: US (occurrence: US)
  Receive Date: 20191025
  Receipt Date: 20191025
  Transmission Date: 20200122
  Serious: Yes (Other)
  Sender: FDA-Public Use
  Company Number: US-BRISTOL-MYERS SQUIBB COMPANY-BMS-2019-101268

PATIENT
  Sex: Female
  Weight: 107.94 kg

DRUGS (1)
  1. APIXABAN [Suspect]
     Active Substance: APIXABAN
     Indication: FACTOR V DEFICIENCY
     Dosage: 5 MILLIGRAM, BID
     Route: 048

REACTIONS (3)
  - Transient ischaemic attack [Unknown]
  - Intentional product use issue [Unknown]
  - Product supply issue [Unknown]
